FAERS Safety Report 10072224 (Version 1)
Quarter: 2014Q2

REPORT INFORMATION
  Report Type: Spontaneous
  Country: US (occurrence: US)
  Receive Date: 20140411
  Receipt Date: 20140411
  Transmission Date: 20141212
  Serious: Yes (Hospitalization)
  Sender: FDA-Public Use
  Company Number: US-SA-2014SA039407

PATIENT
  Age: 65 Year
  Sex: Female

DRUGS (4)
  1. LANTUS SOLOSTAR [Suspect]
     Indication: PRODUCT USED FOR UNKNOWN INDICATION
     Dosage: PENS ARE PAST THE 28 DAY EXPIRATION DOSE:46 UNIT(S)
     Route: 065
     Dates: start: 2009
  2. LANTUS SOLOSTAR [Suspect]
     Indication: PRODUCT USED FOR UNKNOWN INDICATION
     Dosage: DOSE:46 UNIT(S)
     Route: 065
  3. SOLOSTAR [Concomitant]
     Dates: start: 2009
  4. SOLOSTAR [Concomitant]

REACTIONS (2)
  - Dementia Alzheimer^s type [Unknown]
  - Expired product administered [Unknown]
